FAERS Safety Report 19140054 (Version 1)
Quarter: 2021Q2

REPORT INFORMATION
  Report Type: Spontaneous
  Country: US (occurrence: US)
  Receive Date: 20210415
  Receipt Date: 20210415
  Transmission Date: 20210717
  Serious: No
  Sender: FDA-Public Use
  Company Number: None

PATIENT
  Age: 67 Year
  Sex: Female
  Weight: 73.94 kg

DRUGS (9)
  1. BENADRYL ALLERGY [Concomitant]
     Active Substance: DIPHENHYDRAMINE HYDROCHLORIDE
  2. ELIQUIS [Concomitant]
     Active Substance: APIXABAN
  3. TRIAMCINOLONE ACETONIDE OINTMENT [Concomitant]
     Active Substance: TRIAMCINOLONE ACETONIDE
  4. METFORMIN 500MG [Concomitant]
     Active Substance: METFORMIN HYDROCHLORIDE
  5. POTASSIUM CL SR MC TB 20MEQ [Concomitant]
  6. XARELTO [Suspect]
     Active Substance: RIVAROXABAN
     Indication: THROMBOSIS
     Route: 048
     Dates: start: 20200608, end: 20210104
  7. ATORVASTATIN 20MG [Concomitant]
     Active Substance: ATORVASTATIN
  8. CHLOROTHIAZ 25MG [Concomitant]
  9. AMLOD/BENAZPRL 10?20MG [Concomitant]

REACTIONS (4)
  - Skin exfoliation [None]
  - Rash [None]
  - Burning sensation [None]
  - Skin laceration [None]

NARRATIVE: CASE EVENT DATE: 20201111
